FAERS Safety Report 15356368 (Version 1)
Quarter: 2018Q3

REPORT INFORMATION
  Report Type: Spontaneous
  Country: GB (occurrence: GB)
  Receive Date: 20180906
  Receipt Date: 20180906
  Transmission Date: 20181010
  Serious: Yes (Other)
  Sender: FDA-Public Use
  Company Number: GB-ALVOGEN-2018-ALVOGEN-097226

PATIENT
  Age: 72 Year
  Sex: Female

DRUGS (1)
  1. DAPSONE. [Suspect]
     Active Substance: DAPSONE
     Indication: URTICARIAL VASCULITIS

REACTIONS (3)
  - Diarrhoea haemorrhagic [Unknown]
  - Haemolytic anaemia [Unknown]
  - Mouth ulceration [Unknown]
